FAERS Safety Report 22331509 (Version 4)
Quarter: 2023Q2

REPORT INFORMATION
  Report Type: Spontaneous
  Country: US (occurrence: US)
  Receive Date: 20230517
  Receipt Date: 20230526
  Transmission Date: 20230721
  Serious: Yes (Other)
  Sender: FDA-Public Use
  Company Number: US-MLMSERVICE-20230504-4270375-1

PATIENT
  Age: 66 Year
  Sex: Female
  Weight: 64.4 kg

DRUGS (12)
  1. LEVOTHYROXINE SODIUM [Interacting]
     Active Substance: LEVOTHYROXINE SODIUM
     Dosage: 171 UG, 1X/DAY
     Route: 048
  2. LEVOTHYROXINE SODIUM [Interacting]
     Active Substance: LEVOTHYROXINE SODIUM
     Dosage: 157 UG, DAILY
  3. LEVOTHYROXINE SODIUM [Interacting]
     Active Substance: LEVOTHYROXINE SODIUM
     Dosage: 141 UG, DAILY
  4. LEVOTHYROXINE SODIUM [Interacting]
     Active Substance: LEVOTHYROXINE SODIUM
     Dosage: MAINTAINED AT AN AVERAGE OF 141 MCG/DAY (137 MCGX5 DAYS/WEEK AND 150 MCGX2 DAYS/WEEK
  5. VENLAFAXINE [Interacting]
     Active Substance: VENLAFAXINE HYDROCHLORIDE
     Indication: Antidepressant therapy
     Dosage: VENLAFAXINE XR TAPERING SCHEDULE WAS INITIATED /TOTAL DAILY VENLAFAXINE XR DOSE WAS REDUCED
     Route: 048
  6. VENLAFAXINE [Interacting]
     Active Substance: VENLAFAXINE HYDROCHLORIDE
     Dosage: REDUCTION FROM 225 MG/DAY TO 155 MG/DAY
     Route: 048
  7. VENLAFAXINE [Interacting]
     Active Substance: VENLAFAXINE HYDROCHLORIDE
     Dosage: 150 MG/DAY AT WEEK 28
  8. TRAZODONE [Concomitant]
     Active Substance: TRAZODONE HYDROCHLORIDE
     Dosage: AT BEDTIME
  9. AMLODIPINE [Concomitant]
     Active Substance: AMLODIPINE BESYLATE
     Dosage: 5 MG, 1X/DAY
  10. ZOLEDRONIC ACID [Concomitant]
     Active Substance: ZOLEDRONIC ACID
     Dosage: 15 MG, CYCLIC (ONCE ANNUALLY)
  11. VALSARTAN [Concomitant]
     Active Substance: VALSARTAN
     Dosage: 360 MG, 1X/DAY
  12. VALSARTAN [Concomitant]
     Active Substance: VALSARTAN
     Dosage: 160 MG, DAILY

REACTIONS (4)
  - Ventricular extrasystoles [Recovered/Resolved]
  - Blood thyroid stimulating hormone decreased [Recovered/Resolved]
  - Ventricular tachycardia [Recovered/Resolved]
  - Drug interaction [Recovered/Resolved]
